FAERS Safety Report 15004805 (Version 2)
Quarter: 2025Q2

REPORT INFORMATION
  Report Type: Report from Study
  Country: GB (occurrence: IT)
  Receive Date: 20180613
  Receipt Date: 20250429
  Transmission Date: 20250717
  Serious: Yes (Other)
  Sender: AUROBINDO
  Company Number: IT-AUROBINDO-AUR-APL-2018-031128

PATIENT
  Age: 66 Year
  Sex: Male

DRUGS (3)
  1. LAMIVUDINE [Suspect]
     Active Substance: LAMIVUDINE
     Indication: Hepatitis B
     Route: 065
  2. ADEFOVIR DIPIVOXIL [Suspect]
     Active Substance: ADEFOVIR DIPIVOXIL
     Indication: Hepatitis B
     Route: 065
  3. ENTECAVIR [Concomitant]
     Active Substance: ENTECAVIR
     Indication: Product used for unknown indication
     Route: 065

REACTIONS (2)
  - Viral load increased [Unknown]
  - Drug ineffective [Unknown]
